FAERS Safety Report 6225873-1 (Version None)
Quarter: 2009Q2

REPORT INFORMATION
  Report Type: 
  Country: None (occurrence: None)
  Receive Date: 20090612
  Receipt Date: 20090508
  Transmission Date: 20091009
  Serious: No
  Sender: FDA-Public Use
  Company Number: US-ABBOTT-09P-163-0571403-00

PATIENT
  Sex: Male
  Weight: 78.996 kg

DRUGS (6)
  1. HUMIRA [Suspect]
     Indication: RHEUMATOID ARTHRITIS
     Dates: start: 19990101, end: 20090301
  2. CASODEX [Concomitant]
     Indication: CEREBRAL DISORDER
  3. CLONAZAPEM [Concomitant]
     Indication: INSOMNIA
  4. IPRATROPIUM BROMIDE NEBULIZER [Concomitant]
     Indication: CHRONIC OBSTRUCTIVE PULMONARY DISEASE
  5. PAXIL [Concomitant]
     Indication: ANXIOLYTIC THERAPY
  6. PREDNISONE [Concomitant]
     Indication: RHEUMATOID ARTHRITIS

REACTIONS (1)
  - MUSCULOSKELETAL PAIN [None]
